FAERS Safety Report 19629400 (Version 1)
Quarter: 2021Q3

REPORT INFORMATION
  Report Type: Spontaneous
  Country: US (occurrence: US)
  Receive Date: 20210728
  Receipt Date: 20210728
  Transmission Date: 20211014
  Serious: No
  Sender: FDA-Public Use
  Company Number: US-EPIZYME, INC-2021USEPIZYME0183

PATIENT

DRUGS (10)
  1. DULCOLAX (BISACODYL) [Concomitant]
     Active Substance: BISACODYL
     Indication: PRODUCT USED FOR UNKNOWN INDICATION
  2. CLARITIN [Concomitant]
     Active Substance: LORATADINE
     Indication: PRODUCT USED FOR UNKNOWN INDICATION
  3. CLONAZEPAM. [Concomitant]
     Active Substance: CLONAZEPAM
     Indication: PRODUCT USED FOR UNKNOWN INDICATION
  4. PENTAM [Concomitant]
     Active Substance: PENTAMIDINE ISETHIONATE
     Indication: PRODUCT USED FOR UNKNOWN INDICATION
  5. TAZVERIK [Suspect]
     Active Substance: TAZEMETOSTAT HYDROBROMIDE
     Indication: MALIGNANT CONNECTIVE TISSUE NEOPLASM
     Dosage: 600 MG, QD (MORNINGS)
     Route: 048
     Dates: start: 20210129
  6. ALBUTEROL [SALBUTAMOL] [Concomitant]
     Active Substance: ALBUTEROL
     Indication: PRODUCT USED FOR UNKNOWN INDICATION
  7. FLOVENT [Concomitant]
     Active Substance: FLUTICASONE PROPIONATE
     Indication: PRODUCT USED FOR UNKNOWN INDICATION
  8. SENNA [SENNA ALEXANDRINA LEAF] [Concomitant]
     Indication: PRODUCT USED FOR UNKNOWN INDICATION
  9. ONDANSETRON [Concomitant]
     Active Substance: ONDANSETRON
     Indication: PRODUCT USED FOR UNKNOWN INDICATION
  10. TAZVERIK [Suspect]
     Active Substance: TAZEMETOSTAT HYDROBROMIDE
     Indication: SOFT TISSUE SARCOMA
     Dosage: 400 MG, QD (EVENINGS)
     Route: 048
     Dates: start: 20210129

REACTIONS (4)
  - Off label use [Unknown]
  - Haematemesis [Unknown]
  - Cough [Unknown]
  - Vomiting [Unknown]

NARRATIVE: CASE EVENT DATE: 20210129
